FAERS Safety Report 6129465-4 (Version None)
Quarter: 2009Q1

REPORT INFORMATION
  Report Type: 
  Country: None (occurrence: None)
  Receive Date: 20090323
  Receipt Date: 20090323
  Transmission Date: 20090719
  Serious: Yes (Life-Threatening, Hospitalization)
  Sender: FDA-Public Use
  Company Number: None

PATIENT
  Age: 56 Year
  Sex: Male
  Weight: 110.6777 kg

DRUGS (1)
  1. PEGASYS [Suspect]
     Indication: HEPATITIS C
     Dosage: 180MCG/0.5ML WEEKLY SQ
     Dates: start: 20080926, end: 20081114

REACTIONS (2)
  - ELECTROCARDIOGRAM ABNORMAL [None]
  - PULMONARY EMBOLISM [None]
